FAERS Safety Report 4413528-5 (Version None)
Quarter: 2004Q3

REPORT INFORMATION
  Report Type: 
  Country: None (occurrence: None)
  Receive Date: 20040728
  Receipt Date: 20040722
  Transmission Date: 20050211
  Serious: Yes (Hospitalization)
  Sender: FDA-Public Use
  Company Number: 200419110BWH

PATIENT
  Age: 63 Year
  Sex: Female

DRUGS (13)
  1. CIPRO I.V. (CIPROFLOXACIN HYDROCHLORIDE) [Suspect]
     Indication: URINARY TRACT INFECTION
     Dosage: 400 MG, ONCE, INTRAVENOUS
     Route: 042
     Dates: start: 20040705
  2. LIPITOR [Concomitant]
  3. LEXAPRO [Concomitant]
  4. GENGRAF [Concomitant]
  5. ALLEGRA [Concomitant]
  6. CELLCEPT [Concomitant]
  7. NEURONTIN [Concomitant]
  8. KLONOPIN [Concomitant]
  9. PREDNISONE TAB [Concomitant]
  10. ZANTAC [Concomitant]
  11. FUROSEMIDE [Concomitant]
  12. VITAMIN CAP [Concomitant]
  13. SUPPLEMENTS [Concomitant]

REACTIONS (2)
  - BRAIN OEDEMA [None]
  - INTRACRANIAL PRESSURE INCREASED [None]
